FAERS Safety Report 11434148 (Version 1)
Quarter: 2015Q3

REPORT INFORMATION
  Report Type: Report from Study
  Country: DE (occurrence: DE)
  Receive Date: 20150831
  Receipt Date: 20150831
  Transmission Date: 20151125
  Serious: Yes (Hospitalization)
  Sender: FDA-Public Use
  Company Number: DE-BIOGENIDEC-2015BI118413

PATIENT
  Age: 23 Year
  Sex: Male

DRUGS (2)
  1. PLEGRIDY [Suspect]
     Active Substance: PEGINTERFERON BETA-1A
     Indication: MULTIPLE SCLEROSIS
     Route: 058
     Dates: start: 20141105
  2. MYLEPSIN [Concomitant]
     Indication: TREMOR
     Dates: start: 2014

REACTIONS (4)
  - Headache [Not Recovered/Not Resolved]
  - Road traffic accident [Recovered/Resolved]
  - Cerebral thrombosis [Not Recovered/Not Resolved]
  - Wound [Not Recovered/Not Resolved]

NARRATIVE: CASE EVENT DATE: 20150816
